FAERS Safety Report 14656015 (Version 1)
Quarter: 2018Q1

REPORT INFORMATION
  Report Type: Spontaneous
  Country: US (occurrence: US)
  Receive Date: 20180319
  Receipt Date: 20180319
  Transmission Date: 20180509
  Serious: No
  Sender: FDA-Public Use
  Company Number: US-ASTRAZENECA-2018SE22027

PATIENT
  Sex: Female
  Weight: 67.1 kg

DRUGS (2)
  1. BIAXIN [Concomitant]
     Active Substance: CLARITHROMYCIN
     Dates: start: 20170214
  2. LYNPARZA [Suspect]
     Active Substance: OLAPARIB
     Indication: OVARIAN CANCER RECURRENT
     Route: 048
     Dates: start: 201509

REACTIONS (1)
  - Confusional state [Recovered/Resolved]
